FAERS Safety Report 10089382 (Version 3)
Quarter: 2014Q2

REPORT INFORMATION
  Report Type: Spontaneous
  Country: US (occurrence: US)
  Receive Date: 20140421
  Receipt Date: 20140527
  Transmission Date: 20141212
  Serious: Yes (Other)
  Sender: FDA-Public Use
  Company Number: US-PFIZER INC-2014101969

PATIENT
  Age: 31 Year
  Sex: Female
  Weight: 49.89 kg

DRUGS (3)
  1. LYRICA [Suspect]
     Indication: ENDOMETRIOSIS
     Dosage: 150 MG, 2X/DAY
     Route: 048
     Dates: start: 2011
  2. SYMBICORT [Concomitant]
     Indication: ASTHMA
     Dosage: UNK
  3. ALBUTEROL [Concomitant]
     Indication: ASTHMA
     Dosage: UNK

REACTIONS (1)
  - Arthropathy [Unknown]
